FAERS Safety Report 16625420 (Version 1)
Quarter: 2019Q3

REPORT INFORMATION
  Report Type: Spontaneous
  Country: US (occurrence: US)
  Receive Date: 20190724
  Receipt Date: 20190724
  Transmission Date: 20191004
  Serious: Yes (Life-Threatening, Hospitalization, Disabling, Other)
  Sender: FDA-Public Use
  Company Number: None

PATIENT
  Age: 43 Year
  Sex: Female
  Weight: 105.75 kg

DRUGS (8)
  1. VITAMIN D3, [Concomitant]
  2. TYLENOL [Concomitant]
     Active Substance: ACETAMINOPHEN
  3. ALIGN PROBIOTICS, [Concomitant]
  4. ZANTAC 150 (RANITIDINE HYDROCHLORIDE) [Concomitant]
     Active Substance: RANITIDINE HYDROCHLORIDE
  5. ELIQUIS [Suspect]
     Active Substance: APIXABAN
     Indication: PULMONARY EMBOLISM
     Dosage: ?          QUANTITY:1 TABLET(S);?
     Route: 048
     Dates: start: 20190415
  6. ELIQUIS [Concomitant]
     Active Substance: APIXABAN
  7. METHOCARBAMOL. [Concomitant]
     Active Substance: METHOCARBAMOL
  8. ELIQUIS [Suspect]
     Active Substance: APIXABAN
     Indication: DEEP VEIN THROMBOSIS
     Dosage: ?          QUANTITY:1 TABLET(S);?
     Route: 048
     Dates: start: 20190415

REACTIONS (13)
  - Panic attack [None]
  - Stress [None]
  - Headache [None]
  - Imaging procedure [None]
  - Neoplasm malignant [None]
  - Anxiety [None]
  - Ear discomfort [None]
  - Neoplasm [None]
  - Fear [None]
  - Tension [None]
  - Skin lesion [None]
  - Depression [None]
  - Blood test [None]

NARRATIVE: CASE EVENT DATE: 20190415
